FAERS Safety Report 25063631 (Version 3)
Quarter: 2025Q1

REPORT INFORMATION
  Report Type: Report from Study
  Country: FR (occurrence: FR)
  Receive Date: 20250311
  Receipt Date: 20250327
  Transmission Date: 20250409
  Serious: Yes (Other)
  Sender: NOVARTIS
  Company Number: FR-002147023-NVSC2025FR039097

PATIENT
  Sex: Female

DRUGS (1)
  1. KESIMPTA [Suspect]
     Active Substance: OFATUMUMAB
     Indication: Relapsing-remitting multiple sclerosis
     Dosage: 20 MG, QMO
     Route: 058
     Dates: start: 20240201

REACTIONS (11)
  - Gastrointestinal candidiasis [Recovered/Resolved]
  - Oral candidiasis [Unknown]
  - Genital candidiasis [Recovered/Resolved]
  - Vulvovaginal candidiasis [Unknown]
  - Influenza like illness [Recovered/Resolved]
  - Chills [Unknown]
  - Pain [Unknown]
  - Upper respiratory tract infection [Recovered/Resolved]
  - Pharyngitis [Unknown]
  - Cough [Unknown]
  - Disease recurrence [Recovered/Resolved]

NARRATIVE: CASE EVENT DATE: 20241201
